FAERS Safety Report 8809743 (Version 2)
Quarter: 2014Q3

REPORT INFORMATION
  Report Type: Report from Study
  Country: US (occurrence: US)
  Receive Date: 20120926
  Receipt Date: 20140905
  Transmission Date: 20150326
  Serious: Yes (Death, Other)
  Sender: FDA-Public Use
  Company Number: US-ROCHE-1093350

PATIENT
  Age: 64 Year
  Sex: Male
  Weight: 160 kg

DRUGS (10)
  1. AVASTIN [Suspect]
     Active Substance: BEVACIZUMAB
     Indication: COLORECTAL CANCER
     Route: 065
     Dates: start: 20040720, end: 20040816
  2. GEMZAR [Concomitant]
     Active Substance: GEMCITABINE HYDROCHLORIDE
     Route: 065
     Dates: start: 20040820
  3. OXALIPLATIN. [Concomitant]
     Active Substance: OXALIPLATIN
     Route: 065
     Dates: start: 20040102, end: 20040426
  4. LEUCOVORIN [Concomitant]
     Active Substance: LEUCOVORIN
  5. CISPLATIN. [Concomitant]
     Active Substance: CISPLATIN
  6. AVASTIN [Suspect]
     Active Substance: BEVACIZUMAB
     Indication: COLON CANCER
     Route: 042
     Dates: start: 20040329, end: 20040713
  7. AVASTIN [Suspect]
     Active Substance: BEVACIZUMAB
     Indication: COLON CANCER
  8. DECADRON [Concomitant]
     Active Substance: DEXAMETHASONE
  9. 5-FU [Concomitant]
     Active Substance: FLUOROURACIL
  10. ZOMETA [Concomitant]
     Active Substance: ZOLEDRONIC ACID

REACTIONS (8)
  - Pain [Unknown]
  - Metastases to lung [Unknown]
  - Malaise [Unknown]
  - Death [Fatal]
  - Asthenia [Unknown]
  - Metastases to bone [Unknown]
  - Metastases to liver [Unknown]
  - Back pain [Unknown]

NARRATIVE: CASE EVENT DATE: 20040412
